FAERS Safety Report 18517996 (Version 2)
Quarter: 2020Q4

REPORT INFORMATION
  Report Type: Spontaneous
  Country: US (occurrence: US)
  Receive Date: 20201118
  Receipt Date: 20201119
  Transmission Date: 20210114
  Serious: No
  Sender: FDA-Public Use
  Company Number: US-PFIZER INC-2020449785

PATIENT
  Age: 56 Year
  Sex: Female

DRUGS (1)
  1. IBRANCE [Suspect]
     Active Substance: PALBOCICLIB
     Indication: BREAST CANCER FEMALE
     Dosage: UNK UNK, CYCLIC
     Route: 048
     Dates: start: 202006

REACTIONS (3)
  - Headache [Recovered/Resolved]
  - Cough [Recovered/Resolved]
  - Product dose omission issue [Unknown]
